FAERS Safety Report 9820422 (Version 2)
Quarter: 2014Q4

REPORT INFORMATION
  Report Type: Spontaneous
  Country: US (occurrence: None)
  Receive Date: 20131028
  Receipt Date: 20141015
  Transmission Date: 20150529
  Serious: Yes (Other)
  Sender: FDA-Public Use
  Company Number: 2013US001608

PATIENT
  Age: 52 Year
  Sex: Male
  Weight: 62 kg

DRUGS (3)
  1. SYNTHROID [Concomitant]
     Active Substance: LEVOTHYROXINE SODIUM
  2. ICLUSIG [Suspect]
     Active Substance: PONATINIB
     Indication: CHRONIC MYELOID LEUKAEMIA
     Route: 048
     Dates: start: 20130311, end: 2013
  3. HYDROCODONE (HYDROCODONE) [Concomitant]
     Active Substance: HYDROCODONE

REACTIONS (10)
  - Urine flow decreased [None]
  - Skin exfoliation [None]
  - Dry skin [None]
  - Haematocrit decreased [None]
  - Skin wrinkling [None]
  - Chest pain [None]
  - Haemoglobin decreased [None]
  - Constipation [None]
  - Platelet count decreased [None]
  - Full blood count decreased [None]

NARRATIVE: CASE EVENT DATE: 20130423
